FAERS Safety Report 16052029 (Version 3)
Quarter: 2019Q2

REPORT INFORMATION
  Report Type: Spontaneous
  Country: US (occurrence: US)
  Receive Date: 20190308
  Receipt Date: 20190527
  Transmission Date: 20190711
  Serious: Yes (Other)
  Sender: FDA-Public Use
  Company Number: US-SA-2019SA063885

PATIENT
  Sex: Female

DRUGS (1)
  1. DUPILUMAB [Suspect]
     Active Substance: DUPILUMAB
     Indication: IMMUNODEFICIENCY
     Dosage: 300 MG, QOW
     Route: 058
     Dates: start: 20190103

REACTIONS (2)
  - Abdominal hernia infection [Recovered/Resolved]
  - Umbilical hernia [Unknown]
